FAERS Safety Report 8177615 (Version 5)
Quarter: 2012Q4

REPORT INFORMATION
  Report Type: 
  Country: FR (occurrence: FR)
  Receive Date: 20111012
  Receipt Date: 20121101
  Transmission Date: 20130627
  Serious: Yes (Other)
  Sender: FDA-Public Use
  Company Number: PHHO2011FR17112

PATIENT
  Age: 73 Year
  Sex: Male
  Weight: 79 kg

DRUGS (2)
  1. STI571 [Suspect]
     Indication: CHRONIC MYELOID LEUKAEMIA
     Dosage: 400 mg, QD
     Route: 048
     Dates: start: 20080630
  2. AMN107 [Suspect]
     Indication: CHRONIC MYELOID LEUKAEMIA
     Dosage: 400 mg, BID
     Route: 048
     Dates: start: 20080701

REACTIONS (2)
  - Prostate cancer [Recovering/Resolving]
  - Second primary malignancy [Recovering/Resolving]
